FAERS Safety Report 7681268-5 (Version None)
Quarter: 2011Q3

REPORT INFORMATION
  Report Type: 
  Country: None (occurrence: None)
  Receive Date: 20110810
  Receipt Date: 20110727
  Transmission Date: 20111222
  Serious: Yes (Hospitalization)
  Sender: FDA-Public Use
  Company Number: 1000022589

PATIENT
  Age: 84 Year
  Sex: Male

DRUGS (7)
  1. ARICEPT OD(DONEPEZIL HYDROCHLORIDE) [Concomitant]
  2. WARFARIN SODIUM [Concomitant]
  3. VERAPAMIL HYDROCHLORIDE [Concomitant]
  4. PLETAAL OD(CILOSTAZOL) [Concomitant]
  5. MUCOSTA(REBAMIPIDE) [Concomitant]
  6. PURSENNID(SENNA ALEXANDRINA LEAF) [Concomitant]
  7. MEMANTINE [Suspect]
     Indication: DEMENTIA ALZHEIMER'S TYPE
     Dosage: 5 MG (5 MG,1 IN 1 D),ORAL
     Route: 048
     Dates: start: 20110624, end: 20110708

REACTIONS (7)
  - ALANINE AMINOTRANSFERASE INCREASED [None]
  - HAEMATOCRIT DECREASED [None]
  - ASPARTATE AMINOTRANSFERASE INCREASED [None]
  - HYPERSOMNIA [None]
  - HAEMOGLOBIN DECREASED [None]
  - SEDATION [None]
  - ASTHENIA [None]
